FAERS Safety Report 9307467 (Version 2)
Quarter: 2013Q3

REPORT INFORMATION
  Report Type: Spontaneous
  Country: JP (occurrence: JP)
  Receive Date: 20130524
  Receipt Date: 20130702
  Transmission Date: 20140515
  Serious: Yes (Hospitalization, Other)
  Sender: FDA-Public Use
  Company Number: PHHY2013JP049426

PATIENT
  Age: 22 Year
  Sex: Male

DRUGS (1)
  1. IMATINIB [Suspect]
     Indication: CHRONIC MYELOID LEUKAEMIA
     Dosage: UNK UKN, UNK
     Dates: end: 200904

REACTIONS (6)
  - Visual impairment [Recovered/Resolved]
  - Optic nerve disorder [Unknown]
  - Blast crisis in myelogenous leukaemia [Unknown]
  - Pyrexia [Unknown]
  - Headache [Unknown]
  - Chromosome analysis abnormal [Unknown]
